FAERS Safety Report 13680091 (Version 1)
Quarter: 2017Q2

REPORT INFORMATION
  Report Type: Spontaneous
  Country: BG (occurrence: BG)
  Receive Date: 20170622
  Receipt Date: 20170622
  Transmission Date: 20170830
  Serious: Yes (Other)
  Sender: FDA-Public Use
  Company Number: BG-AKRON, INC.-2022419

PATIENT
  Age: 43 Year
  Sex: Female

DRUGS (1)
  1. COSOPT [Suspect]
     Active Substance: DORZOLAMIDE HYDROCHLORIDE\TIMOLOL MALEATE
     Indication: GLAUCOMA
     Route: 047

REACTIONS (7)
  - Visual impairment [Not Recovered/Not Resolved]
  - Insomnia [Unknown]
  - Vertigo [Unknown]
  - Rhinitis [Unknown]
  - Blindness unilateral [Unknown]
  - Chills [Unknown]
  - Chromatopsia [Not Recovered/Not Resolved]
